FAERS Safety Report 5186552-5 (Version None)
Quarter: 2006Q4

REPORT INFORMATION
  Report Type: 
  Country: None (occurrence: None)
  Receive Date: 20061220
  Receipt Date: 20061213
  Transmission Date: 20070319
  Serious: Yes (Hospitalization, Other)
  Sender: FDA-Public Use
  Company Number: US-ABBOTT-06P-163-0353289-00

PATIENT
  Sex: Male
  Weight: 73.548 kg

DRUGS (2)
  1. TERAZOSIN HCL [Suspect]
     Indication: PROSTATE EXAMINATION ABNORMAL
     Dates: start: 19860101, end: 20061212
  2. ALFUZOSIN HYDROCHLORIDE [Suspect]
     Indication: DRUG USE FOR UNKNOWN INDICATION

REACTIONS (2)
  - INCORRECT DOSE ADMINISTERED [None]
  - PROSTATE CANCER [None]
